FAERS Safety Report 10571288 (Version 2)
Quarter: 2014Q4

REPORT INFORMATION
  Report Type: Spontaneous
  Country: JP (occurrence: JP)
  Receive Date: 20141107
  Receipt Date: 20141118
  Transmission Date: 20150529
  Serious: Yes (Death, Hospitalization, Other)
  Sender: FDA-Public Use
  Company Number: JP-ASTRAZENECA-2014SE83133

PATIENT
  Age: 82 Year
  Sex: Male
  Weight: 55 kg

DRUGS (9)
  1. DORNER [Concomitant]
     Active Substance: BERAPROST SODIUM
  2. LOXONIN [Concomitant]
     Active Substance: LOXOPROFEN SODIUM
  3. METHYCOBAL [Concomitant]
     Active Substance: METHYLCOBALAMIN
  4. LIPOVAS [Concomitant]
     Active Substance: PRAVASTATIN SODIUM
  5. AMARYL [Concomitant]
     Active Substance: GLIMEPIRIDE
  6. CASODEX [Suspect]
     Active Substance: BICALUTAMIDE
     Indication: PROSTATE CANCER
     Route: 048
     Dates: start: 20141014, end: 20141022
  7. GLUCOBAY [Concomitant]
     Active Substance: ACARBOSE
  8. BAYASPIRIN [Concomitant]
     Active Substance: ASPIRIN
  9. MUCOSTA [Concomitant]
     Active Substance: REBAMIPIDE

REACTIONS (1)
  - Pulmonary alveolar haemorrhage [Fatal]

NARRATIVE: CASE EVENT DATE: 20141022
